FAERS Safety Report 18533234 (Version 6)
Quarter: 2021Q1

REPORT INFORMATION
  Report Type: Report from Study
  Country: CA (occurrence: CA)
  Receive Date: 20201123
  Receipt Date: 20210107
  Transmission Date: 20210419
  Serious: Yes (Hospitalization, Other)
  Sender: FDA-Public Use
  Company Number: CA-BRISTOL-MYERS SQUIBB COMPANY-BMS-2020-093977

PATIENT
  Age: 58 Year
  Sex: Male
  Weight: 100 kg

DRUGS (3)
  1. YERVOY [Suspect]
     Active Substance: IPILIMUMAB
     Indication: MESOTHELIOMA
     Dosage: 100 MILLIGRAM, Q2WK
     Route: 042
     Dates: start: 20201104
  2. NIVOLUMAB [Suspect]
     Active Substance: NIVOLUMAB
     Indication: MESOTHELIOMA
     Dosage: 300 MILLIGRAM, Q2WK
     Route: 042
     Dates: start: 20201104
  3. CBD OIL [Concomitant]
     Active Substance: CANNABIDIOL\HERBALS
     Indication: PRODUCT USED FOR UNKNOWN INDICATION
     Dosage: AT TIME OF ENROLLMENT
     Route: 065

REACTIONS (19)
  - Fatigue [Unknown]
  - Tumour pain [Unknown]
  - Ascites [Unknown]
  - Weight decreased [Unknown]
  - Retching [Unknown]
  - Heart rate increased [Unknown]
  - Pericardial effusion [Unknown]
  - Malignant neoplasm progression [Unknown]
  - Neuropathy peripheral [Unknown]
  - Pallor [Unknown]
  - Blood pressure systolic increased [Unknown]
  - Dehydration [Unknown]
  - Abdominal pain [Unknown]
  - Dysphagia [Unknown]
  - Cough [Unknown]
  - Malaise [Unknown]
  - Vomiting [Unknown]
  - Off label use [Unknown]
  - Oxygen saturation decreased [Unknown]

NARRATIVE: CASE EVENT DATE: 20201104
